FAERS Safety Report 5874974-6 (Version None)
Quarter: 2008Q3

REPORT INFORMATION
  Report Type: 
  Country: None (occurrence: None)
  Receive Date: 20080908
  Receipt Date: 20080908
  Transmission Date: 20090109
  Serious: Yes (Other)
  Sender: FDA-Public Use
  Company Number: None

PATIENT
  Sex: Female
  Weight: 76.6579 kg

DRUGS (2)
  1. SINGULAIR [Suspect]
     Indication: ASTHMA
     Dosage: 4 MG 1 A DAY PO
     Route: 048
     Dates: start: 20050501, end: 20080525
  2. SINGULAIR [Suspect]
     Indication: ASTHMA
     Dosage: 10 MG 1 A DAY PO
     Route: 048
     Dates: start: 20080525, end: 20080907

REACTIONS (3)
  - MOOD SWINGS [None]
  - SUICIDAL IDEATION [None]
  - WEIGHT INCREASED [None]
